FAERS Safety Report 8195442-5 (Version None)
Quarter: 2012Q1

REPORT INFORMATION
  Report Type: 
  Country: None (occurrence: None)
  Receive Date: 20120308
  Receipt Date: 20120301
  Transmission Date: 20120608
  Serious: Yes (Hospitalization, Other)
  Sender: FDA-Public Use
  Company Number: PHHY2011JP107576

PATIENT
  Sex: Female
  Weight: 51 kg

DRUGS (6)
  1. MUCOSTA [Concomitant]
     Dosage: 300 MG, UNK
     Route: 048
  2. ALFACALCIDOL [Suspect]
     Indication: FEMUR FRACTURE
     Dosage: 1 UG, DAILY
     Route: 048
     Dates: start: 20091001, end: 20100428
  3. FAMOTIDINE [Concomitant]
     Dosage: 10 MG, UNK
     Route: 048
  4. CALCIUM POLYSTYRENE SULFONATE [Suspect]
     Indication: HYPERKALAEMIA
     Dosage: 75 G, UNK
     Route: 048
     Dates: start: 20080801, end: 20100428
  5. METHYCOBAL [Concomitant]
     Dosage: 1500 UG, UNK
     Route: 048
  6. VALSARTAN/HYDROCHLOROTHIAZIDE [Suspect]
     Indication: HYPERTENSION
     Dosage: 1 DF, DAILY
     Route: 048
     Dates: start: 20091101, end: 20100428

REACTIONS (10)
  - ABNORMAL FAECES [None]
  - FLANK PAIN [None]
  - DEHYDRATION [None]
  - RENAL FAILURE CHRONIC [None]
  - ABDOMINAL PAIN [None]
  - DYSCHEZIA [None]
  - METABOLIC ALKALOSIS [None]
  - HYPERCALCAEMIA [None]
  - BLOOD PRESSURE DIASTOLIC DECREASED [None]
  - HYPOKALAEMIA [None]
